FAERS Safety Report 4432086-2 (Version None)
Quarter: 2004Q3

REPORT INFORMATION
  Report Type: 
  Country: None (occurrence: None)
  Receive Date: 20040819
  Receipt Date: 20040804
  Transmission Date: 20050211
  Serious: Yes (Life-Threatening, Hospitalization)
  Sender: FDA-Public Use
  Company Number: 2004-UK-00755UK

PATIENT
  Age: 78 Year
  Sex: Male

DRUGS (2)
  1. MOBIC [Suspect]
     Indication: OSTEOARTHRITIS
     Dosage: 15 MG (MG, ONCE DAILY), PO
     Route: 048
     Dates: start: 20030319, end: 20040712
  2. CO-DYDRAMOL (PARAMOL-118) [Concomitant]

REACTIONS (3)
  - ABDOMINAL PAIN [None]
  - GASTRIC ULCER PERFORATION [None]
  - PERITONITIS [None]
